FAERS Safety Report 10022340 (Version 1)
Quarter: 2014Q1

REPORT INFORMATION
  Report Type: Spontaneous
  Country: US (occurrence: None)
  Receive Date: 20140318
  Receipt Date: 20140318
  Transmission Date: 20141002
  Serious: Yes (Other)
  Sender: FDA-Public Use
  Company Number: None

PATIENT
  Age: 66 Year
  Sex: Female
  Weight: 72.3 kg

DRUGS (3)
  1. NAFCILLIN [Suspect]
     Indication: STAPHYLOCOCCAL INFECTION
     Dosage: IVPB
     Dates: start: 20131228, end: 20140113
  2. NAFCILLIN [Suspect]
     Indication: BACTERAEMIA
     Dosage: IVPB
     Dates: start: 20131228, end: 20140113
  3. NAFCILLIN [Suspect]
     Indication: WOUND INFECTION STAPHYLOCOCCAL
     Dosage: IVPB
     Dates: start: 20131228, end: 20140113

REACTIONS (1)
  - Neutropenia [None]
